FAERS Safety Report 15122859 (Version 2)
Quarter: 2018Q3

REPORT INFORMATION
  Report Type: Spontaneous
  Country: GB (occurrence: GB)
  Receive Date: 20180709
  Receipt Date: 20180731
  Transmission Date: 20181010
  Serious: Yes (Disabling, Other)
  Sender: FDA-Public Use
  Company Number: GB-MYLANLABS-2018M1047888

PATIENT
  Age: 47 Year
  Sex: Male

DRUGS (1)
  1. CLOPIDOGREL [Suspect]
     Active Substance: CLOPIDOGREL BISULFATE
     Indication: CEREBROVASCULAR ACCIDENT
     Dosage: 75 MG, QD, (STRENGTH: 75)
     Dates: start: 20170818

REACTIONS (3)
  - Blindness [Unknown]
  - Visual impairment [Not Recovered/Not Resolved]
  - Dark circles under eyes [Not Recovered/Not Resolved]
